FAERS Safety Report 10118063 (Version 2)
Quarter: 2014Q2

REPORT INFORMATION
  Report Type: Spontaneous
  Country: US (occurrence: US)
  Receive Date: 20140425
  Receipt Date: 20140514
  Transmission Date: 20141212
  Serious: Yes (Other)
  Sender: FDA-Public Use
  Company Number: US-JNJFOC-20140416303

PATIENT
  Sex: Female
  Weight: 88.45 kg

DRUGS (3)
  1. REMICADE [Suspect]
     Indication: CROHN^S DISEASE
     Route: 042
     Dates: start: 20140328
  2. REMICADE [Suspect]
     Indication: CROHN^S DISEASE
     Route: 042
     Dates: start: 2010
  3. LIALDA [Concomitant]
     Indication: CROHN^S DISEASE
     Dosage: 2 TABLETS ONCE DAILY
     Route: 065

REACTIONS (2)
  - Basal cell carcinoma [Unknown]
  - Hepatic lesion [Unknown]
